FAERS Safety Report 26174377 (Version 1)
Quarter: 2025Q4

REPORT INFORMATION
  Report Type: Spontaneous
  Country: US (occurrence: None)
  Receive Date: 20251218
  Receipt Date: 20251218
  Transmission Date: 20260118
  Serious: Yes (Hospitalization)
  Sender: FDA-CTU
  Company Number: None

PATIENT
  Age: 70 Year
  Sex: Male
  Weight: 78.7 kg

DRUGS (4)
  1. FLUOROURACIL [Suspect]
     Active Substance: FLUOROURACIL
     Dates: end: 20251203
  2. IRINOTECAN [Suspect]
     Active Substance: IRINOTECAN
     Dates: end: 20251203
  3. LEUCOVORIN CALCIUM [Suspect]
     Active Substance: LEUCOVORIN CALCIUM
     Dates: end: 20251203
  4. OXALIPLATIN [Suspect]
     Active Substance: OXALIPLATIN
     Dates: end: 20251203

REACTIONS (6)
  - Haematuria [None]
  - Dysuria [None]
  - Thrombosis [None]
  - Catheter site haemorrhage [None]
  - Presyncope [None]
  - Haemoglobin decreased [None]

NARRATIVE: CASE EVENT DATE: 20251213
